FAERS Safety Report 22080221 (Version 2)
Quarter: 2023Q2

REPORT INFORMATION
  Report Type: Spontaneous
  Country: FI (occurrence: FI)
  Receive Date: 20230309
  Receipt Date: 20230404
  Transmission Date: 20230721
  Serious: Yes (Other)
  Sender: FDA-Public Use
  Company Number: FI-RECORDATI-2023001034

PATIENT
  Sex: Female

DRUGS (9)
  1. CARIPRAZINE HYDROCHLORIDE [Suspect]
     Active Substance: CARIPRAZINE HYDROCHLORIDE
     Indication: Schizophrenia
     Dosage: 1.5 MG
     Dates: start: 20230228, end: 20230301
  2. CARIPRAZINE HYDROCHLORIDE [Suspect]
     Active Substance: CARIPRAZINE HYDROCHLORIDE
     Dosage: 3 MG
     Dates: start: 20230222
  3. CARIPRAZINE HYDROCHLORIDE [Suspect]
     Active Substance: CARIPRAZINE HYDROCHLORIDE
     Dosage: 4.5 MG
     Dates: start: 20230214
  4. CARIPRAZINE HYDROCHLORIDE [Suspect]
     Active Substance: CARIPRAZINE HYDROCHLORIDE
     Dosage: 3 MG, QD
     Dates: start: 20230203
  5. CARIPRAZINE HYDROCHLORIDE [Suspect]
     Active Substance: CARIPRAZINE HYDROCHLORIDE
     Dosage: 1.5 MG, QD
     Dates: start: 20230118
  6. PERATSIN DEKANOAAT [Concomitant]
     Indication: Product used for unknown indication
     Dosage: 216 MG
     Route: 030
     Dates: start: 20230212
  7. PERATSIN DEKANOAAT [Concomitant]
     Dosage: 86.4 MG
     Route: 030
     Dates: start: 20230112
  8. SERTRALINE HYDROCHLORIDE [Concomitant]
     Active Substance: SERTRALINE HYDROCHLORIDE
     Indication: Product used for unknown indication
     Dosage: 150 MG, QD
  9. LORAZEPAM [Concomitant]
     Active Substance: LORAZEPAM
     Indication: Product used for unknown indication
     Dosage: 1 MG ONCE OR TWICE A DAY, IF NECESSARY
     Dates: start: 20230116

REACTIONS (2)
  - Blood prolactin increased [Unknown]
  - Breast discharge [Recovered/Resolved]

NARRATIVE: CASE EVENT DATE: 20230214
